FAERS Safety Report 8023349-2 (Version None)
Quarter: 2012Q1

REPORT INFORMATION
  Report Type: 
  Country: None (occurrence: None)
  Receive Date: 20120104
  Receipt Date: 20111228
  Transmission Date: 20120608
  Serious: Yes (Hospitalization)
  Sender: FDA-Public Use
  Company Number: DE-AMGEN-DEUSP2011069140

PATIENT
  Age: 63 Year
  Sex: Male
  Weight: 97.7 kg

DRUGS (2)
  1. NPLATE [Suspect]
     Indication: IDIOPATHIC THROMBOCYTOPENIC PURPURA
     Dosage: 100 MUG, QWK
     Route: 058
     Dates: start: 20111221, end: 20111228
  2. TORSEMIDE [Concomitant]
     Indication: HYPERTENSION
     Dosage: 10 MG, QD

REACTIONS (5)
  - INFLAMMATORY MARKER INCREASED [None]
  - LEUKOCYTOSIS [None]
  - BODY TEMPERATURE INCREASED [None]
  - C-REACTIVE PROTEIN INCREASED [None]
  - THROMBOCYTOPENIA [None]
